FAERS Safety Report 18079738 (Version 1)
Quarter: 2020Q3

REPORT INFORMATION
  Report Type: Spontaneous
  Country: CN (occurrence: CN)
  Receive Date: 20200728
  Receipt Date: 20200728
  Transmission Date: 20201103
  Serious: Yes (Life-Threatening, Other)
  Sender: FDA-Public Use
  Company Number: CN-GLAXOSMITHKLINE-CN2020APC139546

PATIENT
  Age: 51 Year
  Sex: Female
  Weight: 60 kg

DRUGS (4)
  1. PULMICORT RESPULES [Concomitant]
     Active Substance: BUDESONIDE
     Indication: PRODUCTIVE COUGH
  2. VENTOLIN [Suspect]
     Active Substance: ALBUTEROL SULFATE
     Indication: COUGH
     Dosage: 5 MG, QD
     Route: 055
     Dates: start: 20200711, end: 20200711
  3. PULMICORT RESPULES [Concomitant]
     Active Substance: BUDESONIDE
     Indication: COUGH
     Dosage: 1 MG, QD
     Route: 055
     Dates: start: 20200711, end: 20200711
  4. VENTOLIN [Suspect]
     Active Substance: ALBUTEROL SULFATE
     Indication: PRODUCTIVE COUGH

REACTIONS (6)
  - Tremor [Recovered/Resolved]
  - Sinus arrhythmia [Recovered/Resolved]
  - Arrhythmia [Recovered/Resolved]
  - Dyspnoea [Recovered/Resolved]
  - Tachypnoea [Recovered/Resolved]
  - Chest discomfort [Recovered/Resolved]

NARRATIVE: CASE EVENT DATE: 20200711
